FAERS Safety Report 9745322 (Version 1)
Quarter: 2013Q4

REPORT INFORMATION
  Report Type: Spontaneous
  Country: JP (occurrence: JP)
  Receive Date: 20131211
  Receipt Date: 20131211
  Transmission Date: 20140711
  Serious: Yes (Life-Threatening)
  Sender: FDA-Public Use
  Company Number: US-ASTRAZENECA-2013SE90080

PATIENT
  Sex: Male

DRUGS (2)
  1. ECARD COMBINATION LD [Suspect]
     Route: 048
  2. UNISIA [Concomitant]
     Route: 048

REACTIONS (1)
  - Atrial fibrillation [Unknown]
